FAERS Safety Report 23515979 (Version 2)
Quarter: 2025Q1

REPORT INFORMATION
  Report Type: Spontaneous
  Country: US (occurrence: US)
  Receive Date: 20240213
  Receipt Date: 20250218
  Transmission Date: 20250409
  Serious: No
  Sender: MERZ
  Company Number: US-ACORDA-ACO_176652_2023

PATIENT
  Age: 76 Year
  Sex: Female

DRUGS (10)
  1. INBRIJA [Suspect]
     Active Substance: LEVODOPA
     Indication: Parkinson^s disease
     Dates: start: 202308
  2. INBRIJA [Suspect]
     Active Substance: LEVODOPA
     Indication: On and off phenomenon
     Dates: start: 202308
  3. INBRIJA [Suspect]
     Active Substance: LEVODOPA
     Dates: start: 202308
  4. INBRIJA [Suspect]
     Active Substance: LEVODOPA
     Dates: start: 202308
  5. RYTARY [Concomitant]
     Active Substance: CARBIDOPA\LEVODOPA
     Indication: Product used for unknown indication
     Dosage: 1 DOSAGE FORM (48.75/195 MILLIGRAM), QID
     Route: 065
  6. RYTARY [Concomitant]
     Active Substance: CARBIDOPA\LEVODOPA
     Route: 065
  7. RYTARY [Concomitant]
     Active Substance: CARBIDOPA\LEVODOPA
     Route: 065
  8. SINEMET [Concomitant]
     Active Substance: CARBIDOPA\LEVODOPA
     Indication: On and off phenomenon
     Route: 065
  9. RASAGILINE [Concomitant]
     Active Substance: RASAGILINE
     Indication: Product used for unknown indication
     Route: 065
  10. PEPCID AC [Concomitant]
     Active Substance: FAMOTIDINE
     Indication: Product used for unknown indication
     Route: 065

REACTIONS (8)
  - Wrong technique in product usage process [Recovered/Resolved]
  - Expired product administered [Recovered/Resolved]
  - Product use issue [Not Recovered/Not Resolved]
  - Product dispensing error [Not Recovered/Not Resolved]
  - Device use issue [Not Recovered/Not Resolved]
  - Underdose [Recovered/Resolved]
  - Inappropriate schedule of product administration [Not Recovered/Not Resolved]
  - Cough [Not Recovered/Not Resolved]

NARRATIVE: CASE EVENT DATE: 20230801
